FAERS Safety Report 5812632-4 (Version None)
Quarter: 2008Q3

REPORT INFORMATION
  Report Type: 
  Country: None (occurrence: None)
  Receive Date: 20080711
  Receipt Date: 20080701
  Transmission Date: 20090109
  Serious: Yes (Hospitalization)
  Sender: FDA-Public Use
  Company Number: 2008AL003160

PATIENT
  Age: 79 Year
  Sex: Female
  Weight: 70.7611 kg

DRUGS (3)
  1. DIGOXIN [Suspect]
     Dosage: 0.25 MG, DAILY, PO
     Route: 048
  2. NORVASC [Suspect]
     Indication: BLOOD PRESSURE ABNORMAL
     Dosage: 5MG BID PO
     Route: 048
     Dates: start: 19900101, end: 20080401
  3. UNSPECIFIED BLOOD PRESSURE MEDICATIONS [Concomitant]

REACTIONS (5)
  - ASTHENIA [None]
  - DIZZINESS [None]
  - FATIGUE [None]
  - RASH [None]
  - UNEVALUABLE EVENT [None]
